FAERS Safety Report 7987899-7 (Version None)
Quarter: 2011Q4

REPORT INFORMATION
  Report Type: 
  Country: None (occurrence: None)
  Receive Date: 20111216
  Receipt Date: 20111207
  Transmission Date: 20120403
  Serious: Yes (Disabling)
  Sender: FDA-Public Use
  Company Number: GB-ASTRAZENECA-2011SE72598

PATIENT
  Age: 48 Year
  Sex: Male

DRUGS (9)
  1. SEROQUEL XR [Suspect]
     Route: 048
  2. DEPAKOTE [Suspect]
     Indication: MANIA
     Route: 048
     Dates: start: 20110701
  3. SEROQUEL XR [Suspect]
     Indication: BIPOLAR DISORDER
     Route: 048
  4. SEROQUEL XR [Suspect]
     Route: 048
  5. SEROQUEL XR [Suspect]
     Route: 048
  6. SEROQUEL XR [Suspect]
     Route: 048
  7. SEROQUEL XR [Suspect]
     Route: 048
     Dates: start: 20110701
  8. SEROQUEL XR [Suspect]
     Indication: MANIA
     Route: 048
  9. SEROQUEL XR [Suspect]
     Route: 048
     Dates: start: 20110701

REACTIONS (2)
  - ERECTILE DYSFUNCTION [None]
  - MANIA [None]
